FAERS Safety Report 4770804-4 (Version None)
Quarter: 2005Q3

REPORT INFORMATION
  Report Type: 
  Country: None (occurrence: None)
  Receive Date: 20050914
  Receipt Date: 20050914
  Transmission Date: 20060218
  Serious: Yes (Death)
  Sender: FDA-Public Use
  Company Number: None

PATIENT
  Age: 48 Year
  Sex: Male
  Weight: 84.8226 kg

DRUGS (2)
  1. COMBIVIR [Suspect]
     Indication: HIV INFECTION
     Dosage: 1 TAB BID PO
     Route: 048
     Dates: start: 20011112, end: 20050722
  2. KALETRA [Suspect]
     Indication: HIV INFECTION
     Dosage: 3 TABS BID PO
     Route: 048
     Dates: start: 20030724, end: 20050722

REACTIONS (1)
  - MYOCARDIAL INFARCTION [None]
